FAERS Safety Report 16628855 (Version 1)
Quarter: 2019Q3

REPORT INFORMATION
  Report Type: Spontaneous
  Country: US (occurrence: US)
  Receive Date: 20190725
  Receipt Date: 20190725
  Transmission Date: 20191004
  Serious: No
  Sender: FDA-Public Use
  Company Number: US-DRREDDYS-USA/USA/19/0112330

PATIENT
  Age: 58 Year
  Sex: Female

DRUGS (7)
  1. TADALAFIL TABLETS [Suspect]
     Active Substance: TADALAFIL
     Indication: PRODUCT USED FOR UNKNOWN INDICATION
     Route: 065
  2. ACETAZOLAMIDE. [Concomitant]
     Active Substance: ACETAZOLAMIDE
     Indication: HYPOBARISM
  3. ALBUTEROL. [Concomitant]
     Active Substance: ALBUTEROL
     Indication: HYPOBARISM
  4. OXYGEN. [Concomitant]
     Active Substance: OXYGEN
     Indication: HYPOBARISM
  5. OXYGEN. [Concomitant]
     Active Substance: OXYGEN
     Indication: PULMONARY OEDEMA
     Route: 065
  6. ACETAZOLAMIDE. [Concomitant]
     Active Substance: ACETAZOLAMIDE
     Indication: PROPHYLAXIS
     Route: 048
  7. ALBUTEROL. [Concomitant]
     Active Substance: ALBUTEROL
     Indication: HYPOXIA
     Route: 065

REACTIONS (1)
  - Swelling face [Unknown]
